FAERS Safety Report 9500438 (Version 1)
Quarter: 2013Q1

REPORT INFORMATION
  Report Type: Spontaneous
  Country: US (occurrence: None)
  Receive Date: 20130118
  Receipt Date: 20130118
  Transmission Date: 20140127
  Serious: Yes (Hospitalization)
  Sender: FDA-Public Use
  Company Number: A-NJ2012-66780

PATIENT
  Age: 69 Year
  Sex: Male

DRUGS (1)
  1. TRACLEER [Suspect]
     Indication: PULMONARY HYPERTENSION
     Route: 048
     Dates: start: 20120328, end: 201204

REACTIONS (4)
  - Pneumonia [None]
  - Oedema [None]
  - Oxygen saturation decreased [None]
  - Oedema peripheral [None]
